FAERS Safety Report 25688860 (Version 1)
Quarter: 2025Q3

REPORT INFORMATION
  Report Type: Spontaneous
  Country: CN (occurrence: CN)
  Receive Date: 20250818
  Receipt Date: 20250818
  Transmission Date: 20251020
  Serious: Yes (Hospitalization, Other)
  Sender: BAXTER
  Company Number: None

PATIENT
  Age: 56 Year
  Sex: Female
  Weight: 41.5 kg

DRUGS (4)
  1. CYCLOPHOSPHAMIDE [Suspect]
     Active Substance: CYCLOPHOSPHAMIDE
     Indication: Breast cancer female
     Dosage: 0.792 G, QD
     Route: 041
     Dates: start: 20250718, end: 20250718
  2. DEXTROSE [Suspect]
     Active Substance: DEXTROSE MONOHYDRATE
     Dosage: 250 ML, QD, 5% INJECTION, WITH DOXORUBICIN HYDROCHLORIDE LIPOSOME
     Route: 041
     Dates: start: 20250718, end: 20250718
  3. SODIUM CHLORIDE [Suspect]
     Active Substance: SODIUM CHLORIDE
     Dosage: 500 ML, QD, 0.9% INJECTION WITH CYCLOPHOSPHAMIDE
     Route: 041
     Dates: start: 20250718, end: 20250718
  4. DOXORUBICIN HYDROCHLORIDE [Suspect]
     Active Substance: DOXORUBICIN HYDROCHLORIDE
     Indication: Breast cancer female
     Dosage: 13.3 ML, QD
     Route: 041
     Dates: start: 20250718, end: 20250718

REACTIONS (1)
  - Myelosuppression [Recovering/Resolving]

NARRATIVE: CASE EVENT DATE: 20250807
